FAERS Safety Report 7628806-6 (Version None)
Quarter: 2011Q3

REPORT INFORMATION
  Report Type: 
  Country: None (occurrence: None)
  Receive Date: 20110722
  Receipt Date: 20110412
  Transmission Date: 20111222
  Serious: No
  Sender: FDA-Public Use
  Company Number: US-BAYER-2011-032374

PATIENT
  Age: 43 Year
  Sex: Female
  Weight: 45.805 kg

DRUGS (8)
  1. CALCIUM CARBONATE [Concomitant]
     Dosage: UNK
  2. VITAMIN D [Concomitant]
     Dosage: 50000 U, UNK
  3. PROVIGIL [Concomitant]
     Dosage: 100 MG, UNK
  4. BETASERON [Suspect]
     Dosage: 0.25 MG, QOD
     Route: 058
     Dates: start: 20110312
  5. AMBIEN [Concomitant]
     Dosage: 5 MG, UNK
  6. NEURONTIN [Concomitant]
     Dosage: 100 MG, UNK
  7. SYNTHROID [Concomitant]
     Dosage: 50 MCG
  8. FLAXSEED OIL [Concomitant]

REACTIONS (1)
  - INJECTION SITE REACTION [None]
